FAERS Safety Report 7089210-5 (Version None)
Quarter: 2010Q4

REPORT INFORMATION
  Report Type: 
  Country: None (occurrence: None)
  Receive Date: 20101029
  Receipt Date: 20101019
  Transmission Date: 20110411
  Serious: Yes (Other)
  Sender: FDA-Public Use
  Company Number: 2010EU005430

PATIENT
  Sex: Female

DRUGS (1)
  1. VESICARE [Suspect]
     Dates: start: 20100901

REACTIONS (1)
  - DIPLOPIA [None]
